FAERS Safety Report 15612468 (Version 2)
Quarter: 2018Q4

REPORT INFORMATION
  Report Type: Spontaneous
  Country: US (occurrence: US)
  Receive Date: 20181113
  Receipt Date: 20181218
  Transmission Date: 20190205
  Serious: No
  Sender: FDA-Public Use
  Company Number: US-ASTRAZENECA-2018SF40318

PATIENT
  Sex: Female
  Weight: 127 kg

DRUGS (1)
  1. SYMBICORT [Suspect]
     Active Substance: BUDESONIDE\FORMOTEROL FUMARATE DIHYDRATE
     Indication: PULMONARY HYPERTENSION
     Dosage: 80/4.5 MCGS, TWO PUFFS
     Route: 055
     Dates: start: 2017

REACTIONS (6)
  - Device issue [Unknown]
  - Intentional device misuse [Unknown]
  - Product use issue [Unknown]
  - Dysphonia [Unknown]
  - Bronchitis [Unknown]
  - Off label use [Unknown]
